FAERS Safety Report 8820757 (Version 1)
Quarter: 2012Q4

REPORT INFORMATION
  Report Type: 
  Country: GB (occurrence: GB)
  Receive Date: 20121002
  Receipt Date: 20121002
  Transmission Date: 20130627
  Serious: Yes (Other)
  Sender: FDA-Public Use
  Company Number: GB-ROCHE-1139188

PATIENT
  Age: 26 Year
  Sex: Male
  Weight: 76.2 kg

DRUGS (2)
  1. ROACCUTANE [Suspect]
     Indication: ACNE
     Route: 048
     Dates: start: 20120617, end: 20120713
  2. OMEPRAZOLE [Concomitant]

REACTIONS (1)
  - Abdominal pain [Not Recovered/Not Resolved]
